FAERS Safety Report 4834172-1 (Version None)
Quarter: 2005Q4

REPORT INFORMATION
  Report Type: 
  Country: None (occurrence: None)
  Receive Date: 20051118
  Receipt Date: 20051118
  Transmission Date: 20060501
  Serious: Yes (Other)
  Sender: FDA-Public Use
  Company Number: None

PATIENT
  Age: 64 Year
  Sex: Female
  Weight: 122.7 kg

DRUGS (21)
  1. MELOXICAM [Suspect]
  2. ACETAMINOPHEN [Concomitant]
  3. ALBUTEROL SULFATE AND IPRATROPIUM BROMIDE [Concomitant]
  4. ASPIRIN [Concomitant]
  5. CALCIUM 500MG/VITAMIN D [Concomitant]
  6. CITALOPRAM HYDROBROMIDE [Concomitant]
  7. DIVALPROEX SODIUM [Concomitant]
  8. DOCUSATE NA 50MG/SENNOSIDES 8.6MG [Concomitant]
  9. GABAPENTIN [Concomitant]
  10. LIDOCAINE [Concomitant]
  11. METOPROLOL TARTRATE [Concomitant]
  12. OMEPRAZOLE [Concomitant]
  13. QUETIAPINE FUMARATE [Concomitant]
  14. CYCLOBENZAPRINE HCL [Concomitant]
  15. PREDNISONE [Concomitant]
  16. FUROSEMIDE [Concomitant]
  17. FENTANYL [Concomitant]
  18. HYPROMELLOSE [Concomitant]
  19. SODIUM CHLORIDE [Concomitant]
  20. CAPSAICIN [Concomitant]
  21. SIMVASTATIN [Concomitant]

REACTIONS (1)
  - OEDEMA [None]
